FAERS Safety Report 8605019-2 (Version None)
Quarter: 2012Q3

REPORT INFORMATION
  Report Type: 
  Country: None (occurrence: None)
  Receive Date: 20120820
  Receipt Date: 20120811
  Transmission Date: 20120928
  Serious: Yes (Other)
  Sender: FDA-Public Use
  Company Number: US-JNJFOC-20120802945

PATIENT
  Sex: Female
  Weight: 83.92 kg

DRUGS (3)
  1. REMICADE [Suspect]
     Indication: CROHN'S DISEASE
     Route: 042
     Dates: start: 20120501
  2. REMICADE [Suspect]
     Route: 042
     Dates: start: 20060101, end: 20090101
  3. REMICADE [Suspect]
     Route: 042
     Dates: start: 20120613, end: 20120613

REACTIONS (9)
  - MOTOR DYSFUNCTION [None]
  - FATIGUE [None]
  - INFUSION RELATED REACTION [None]
  - OCULAR MYASTHENIA [None]
  - ANAPHYLACTIC SHOCK [None]
  - CROHN'S DISEASE [None]
  - DYSPNOEA [None]
  - RESPIRATION ABNORMAL [None]
  - SPEECH DISORDER [None]
